FAERS Safety Report 16074433 (Version 1)
Quarter: 2019Q1

REPORT INFORMATION
  Report Type: Report from Study
  Country: GB (occurrence: GB)
  Receive Date: 20190314
  Receipt Date: 20190314
  Transmission Date: 20190418
  Serious: Yes (Life-Threatening, Hospitalization, Other)
  Sender: FDA-Public Use
  Company Number: GB-GILEAD-2015-0156520

PATIENT
  Age: 83 Year
  Sex: Male
  Weight: 67.7 kg

DRUGS (23)
  1. FERROUS SULFATE. [Concomitant]
     Active Substance: FERROUS SULFATE
     Indication: ANAEMIA
     Dosage: 200 MG, BID
     Route: 048
     Dates: start: 20150528, end: 20150529
  2. IDELALISIB [Suspect]
     Active Substance: IDELALISIB
     Indication: CHRONIC LYMPHOCYTIC LEUKAEMIA
     Dosage: 300 MG
     Route: 048
     Dates: start: 20150417, end: 20150526
  3. TAZOCIN [Concomitant]
     Active Substance: PIPERACILLIN SODIUM\TAZOBACTAM SODIUM
     Dosage: 4.5 G, BID
     Route: 042
     Dates: start: 20150526, end: 20150526
  4. TAZOCIN [Concomitant]
     Active Substance: PIPERACILLIN SODIUM\TAZOBACTAM SODIUM
     Dosage: 4.5 G, UNK
     Route: 042
     Dates: start: 20150528, end: 20150528
  5. CHLORAMBUCIL [Suspect]
     Active Substance: CHLORAMBUCIL
     Indication: CHRONIC LYMPHOCYTIC LEUKAEMIA
     Dosage: 18 MG, PER PROTOCOL
     Route: 048
     Dates: start: 20150417, end: 20150521
  6. OFATUMUMAB [Suspect]
     Active Substance: OFATUMUMAB
     Indication: CHRONIC LYMPHOCYTIC LEUKAEMIA
     Dosage: 1300 MG, PER PROTOCOL
     Route: 042
     Dates: start: 20150417, end: 20150515
  7. ALLOPURINOL. [Concomitant]
     Active Substance: ALLOPURINOL
     Indication: CHRONIC LYMPHOCYTIC LEUKAEMIA
     Dosage: 300 MG, PER PROTOCOL
     Route: 048
     Dates: start: 20150417, end: 20150423
  8. MEROPENEM. [Concomitant]
     Active Substance: MEROPENEM
     Dosage: 2 G, BID
     Route: 042
     Dates: start: 20150529, end: 20150529
  9. SALBUTAMOL [Concomitant]
     Active Substance: ALBUTEROL
     Dosage: 100 UG
     Route: 055
     Dates: start: 20150312
  10. COTRIMOXAZOLE [Concomitant]
     Active Substance: SULFAMETHOXAZOLE\TRIMETHOPRIM
     Indication: CHRONIC LYMPHOCYTIC LEUKAEMIA
     Dosage: 480 MG, PER PROTOCOL
     Route: 048
     Dates: start: 20150417, end: 20150613
  11. TAZOCIN [Concomitant]
     Active Substance: PIPERACILLIN SODIUM\TAZOBACTAM SODIUM
     Indication: NEUTROPENIC SEPSIS
     Dosage: 4.5 G, BID
     Route: 042
     Dates: start: 20150524, end: 20150524
  12. MEROPENEM. [Concomitant]
     Active Substance: MEROPENEM
     Indication: NEUTROPENIC SEPSIS
     Dosage: 1 G, UNK
     Route: 042
     Dates: start: 20150528, end: 20150528
  13. PARACETAMOL [Concomitant]
     Active Substance: ACETAMINOPHEN
     Indication: CHRONIC LYMPHOCYTIC LEUKAEMIA
     Dosage: 1000 MG, PER PROTOCOL
     Route: 048
     Dates: start: 20150417
  14. CHLORPHENIRAMINE                   /00072501/ [Concomitant]
     Active Substance: CHLORPHENIRAMINE
     Indication: CHRONIC LYMPHOCYTIC LEUKAEMIA
     Dosage: 10 MG, PER PROTOCOL
     Route: 042
     Dates: start: 20150417, end: 20150515
  15. HYDROCORTISONE. [Concomitant]
     Active Substance: HYDROCORTISONE
     Indication: CHRONIC LYMPHOCYTIC LEUKAEMIA
     Dosage: 200 MG, PER PROTOCOL
     Route: 042
     Dates: start: 20150417, end: 20150515
  16. ACICLOVIR [Concomitant]
     Active Substance: ACYCLOVIR
     Indication: CHRONIC LYMPHOCYTIC LEUKAEMIA
     Dosage: 400 MG, PER PROTOCOL
     Route: 048
     Dates: start: 20150417
  17. G-CSF [Concomitant]
     Active Substance: GRANULOCYTE COLONY-STIMULATING FACTOR NOS
     Indication: CHRONIC LYMPHOCYTIC LEUKAEMIA
     Dosage: 30 DF, PER PROTOCOL
     Route: 058
     Dates: start: 20150417, end: 20150603
  18. PARACETAMOL [Concomitant]
     Active Substance: ACETAMINOPHEN
     Indication: PAIN
     Dosage: 1 G, UNK
     Route: 048
     Dates: start: 20150528, end: 20150528
  19. METOCLOPRAMIDE. [Concomitant]
     Active Substance: METOCLOPRAMIDE
     Indication: CHRONIC LYMPHOCYTIC LEUKAEMIA
     Dosage: 30 MG, PER PROTOCOL
     Route: 048
     Dates: start: 20150417
  20. DALTEPARIN [Concomitant]
     Active Substance: DALTEPARIN
     Indication: THROMBOSIS PROPHYLAXIS
     Dosage: 5000 DF, QD
     Route: 058
     Dates: start: 20150524, end: 20150525
  21. TAZOCIN [Concomitant]
     Active Substance: PIPERACILLIN SODIUM\TAZOBACTAM SODIUM
     Dosage: 18 G, BID
     Route: 042
     Dates: start: 20150525, end: 20150525
  22. RANITIDINE. [Concomitant]
     Active Substance: RANITIDINE
     Indication: PROPHYLAXIS
     Dosage: 150 MG, UNK
     Route: 048
     Dates: start: 20150528, end: 20150528
  23. GENTAMYCIN                         /00047101/ [Concomitant]
     Active Substance: GENTAMICIN
     Indication: NEUTROPENIC SEPSIS
     Dosage: 320 MG, BID
     Route: 048
     Dates: start: 20150528, end: 20150529

REACTIONS (1)
  - Acute myocardial infarction [Recovered/Resolved with Sequelae]

NARRATIVE: CASE EVENT DATE: 20150528
